FAERS Safety Report 11061662 (Version 2)
Quarter: 2015Q2

REPORT INFORMATION
  Report Type: Spontaneous
  Country: FR (occurrence: FR)
  Receive Date: 20150424
  Receipt Date: 20150602
  Transmission Date: 20150821
  Serious: Yes (Disabling)
  Sender: FDA-Public Use
  Company Number: FR-ROCHE-1567373

PATIENT
  Sex: Female

DRUGS (7)
  1. ARICEPT [Concomitant]
     Active Substance: DONEPEZIL HYDROCHLORIDE
     Dosage: IN EVENING
     Route: 065
  2. PROPRANOLOL [Concomitant]
     Active Substance: PROPRANOLOL\PROPRANOLOL HYDROCHLORIDE
     Dosage: 0.25 DF ONCE DAILY IN THE MORNING
     Route: 065
  3. ERIVEDGE [Suspect]
     Active Substance: VISMODEGIB
     Indication: BASAL CELL CARCINOMA
     Route: 048
     Dates: start: 20140922
  4. CACIT (FRANCE) [Concomitant]
     Dosage: D3 1 BAG IN THE EVENING
     Route: 065
  5. INOFER [Concomitant]
  6. PROZAC [Concomitant]
     Active Substance: FLUOXETINE HYDROCHLORIDE
     Dosage: 0.5 DF DAILY IN THE MORNING
     Route: 065
  7. XANAX [Concomitant]
     Active Substance: ALPRAZOLAM
     Dosage: 0.5 DF DAILY IN THE EVENING
     Route: 065

REACTIONS (1)
  - Eye penetration [Not Recovered/Not Resolved]

NARRATIVE: CASE EVENT DATE: 20150417
